FAERS Safety Report 8356652-7 (Version None)
Quarter: 2012Q2

REPORT INFORMATION
  Report Type: 
  Country: None (occurrence: None)
  Receive Date: 20120514
  Receipt Date: 20120509
  Transmission Date: 20120825
  Serious: Yes (Death, Life-Threatening, Hospitalization)
  Sender: FDA-Public Use
  Company Number: PHHO2012DE006284

PATIENT
  Sex: Male
  Weight: 100 kg

DRUGS (5)
  1. INTERFERON ALFA [Suspect]
     Indication: CHRONIC MYELOID LEUKAEMIA
     Dosage: 20 MG, QD
     Route: 058
     Dates: start: 20030310, end: 20030312
  2. ALLOPURINOL [Concomitant]
     Indication: HYPERURICAEMIA
     Dosage: 300 MG, QD
     Route: 048
     Dates: end: 20030624
  3. METOPROLOL TARTRATE [Concomitant]
     Indication: HYPERTONIA
     Dosage: 95 MG, QD
     Route: 048
     Dates: end: 20030624
  4. IMATINIB MESYLATE [Suspect]
     Indication: CHRONIC MYELOID LEUKAEMIA
     Dosage: 400 MG, QD
     Route: 048
     Dates: start: 20020726, end: 20030331
  5. RAMIPRIL [Concomitant]
     Indication: HYPERTONIA
     Dosage: 5 MG, QD
     Route: 048
     Dates: end: 20030624

REACTIONS (5)
  - SEPSIS [None]
  - CEREBRAL HAEMORRHAGE [None]
  - RENAL FAILURE [None]
  - ACUTE RESPIRATORY DISTRESS SYNDROME [None]
  - ATRIAL FLUTTER [None]
